FAERS Safety Report 4886893-2 (Version None)
Quarter: 2006Q1

REPORT INFORMATION
  Report Type: 
  Country: None (occurrence: None)
  Receive Date: 20060119
  Receipt Date: 20060106
  Transmission Date: 20060701
  Serious: Yes (Other)
  Sender: FDA-Public Use
  Company Number: GXKR2006BR00479

PATIENT
  Sex: Male
  Weight: 56 kg

DRUGS (2)
  1. TRILAX (NGX) (CAFFEINE, CARISOPRODOL, DICLOFENAC, PARACETAMOL) TABLET [Suspect]
     Indication: ARTHRALGIA
     Dosage: ONLY 1 TABLET, ORAL
     Route: 048
     Dates: start: 20060105, end: 20060105
  2. HIXIZINE (HYDROXYZINE) [Concomitant]

REACTIONS (4)
  - DIARRHOEA [None]
  - DIZZINESS [None]
  - DRUG HYPERSENSITIVITY [None]
  - SYNCOPE [None]
